FAERS Safety Report 9262658 (Version 1)
Quarter: 2013Q2

REPORT INFORMATION
  Report Type: Spontaneous
  Country: US (occurrence: US)
  Receive Date: 20130430
  Receipt Date: 20130430
  Transmission Date: 20140414
  Serious: Yes (Hospitalization, Other)
  Sender: FDA-Public Use
  Company Number: US-JNJFOC-20110905440

PATIENT
  Sex: Female

DRUGS (2)
  1. LEVAQUIN [Suspect]
     Indication: SINUSITIS
     Route: 048
     Dates: start: 20090223
  2. CLEOCIN [Concomitant]
     Indication: ABSCESS
     Route: 065

REACTIONS (3)
  - Rotator cuff syndrome [Recovering/Resolving]
  - Adverse event [Unknown]
  - Abdominal pain upper [Unknown]
